FAERS Safety Report 9908206 (Version 1)
Quarter: 2014Q1

REPORT INFORMATION
  Report Type: Spontaneous
  Country: US (occurrence: US)
  Receive Date: 20140219
  Receipt Date: 20140219
  Transmission Date: 20141002
  Serious: Yes (Other)
  Sender: FDA-Public Use
  Company Number: US-AMGEN-USASP2014011411

PATIENT
  Age: 52 Year
  Sex: Male

DRUGS (13)
  1. ENBREL [Suspect]
     Indication: PSORIASIS
     Dosage: 50 MG, 2 TIMES/WK
     Route: 065
     Dates: start: 20140208
  2. ENBREL [Suspect]
     Indication: NAIL PSORIASIS
  3. TRIAMTERENE AND HYDROCHLOROTHIAZID [Concomitant]
     Dosage: UNK
  4. HYDROCHLOROTHIAZIDE [Concomitant]
     Dosage: UNK
  5. CARVEDILOL [Concomitant]
     Dosage: UNK
  6. FUROSEMIDE [Concomitant]
     Dosage: UNK
  7. PREDNISONE [Concomitant]
     Dosage: UNK
  8. PANTOPRAZOLE [Concomitant]
     Dosage: UNK
  9. AMITRIPTYLINE [Concomitant]
     Dosage: UNK
  10. DICLOFENAC [Concomitant]
     Dosage: UNK
  11. LORAZEPAM [Concomitant]
     Dosage: UNK
  12. GABAPENTIN [Concomitant]
     Dosage: UNK
  13. OXYCODONE [Concomitant]
     Dosage: UNK

REACTIONS (3)
  - Motor dysfunction [Unknown]
  - Dysarthria [Unknown]
  - Incoherent [Unknown]
